FAERS Safety Report 6853510-1 (Version None)
Quarter: 2010Q3

REPORT INFORMATION
  Report Type: 
  Country: None (occurrence: None)
  Receive Date: 20100717
  Receipt Date: 20080121
  Transmission Date: 20110219
  Serious: No
  Sender: FDA-Public Use
  Company Number: US-PFIZER INC-2007102522

PATIENT
  Sex: Male
  Weight: 79.8 kg

DRUGS (6)
  1. CHANTIX [Suspect]
     Indication: SMOKING CESSATION THERAPY
     Dates: start: 20071101
  2. HERBAL NOS/MINERALS NOS [Concomitant]
  3. CRESTOR [Concomitant]
  4. DIAZEPAM [Concomitant]
  5. CHOLESTEROL- AND TRIGLYCERIDE REDUCERS [Concomitant]
     Indication: BLOOD CHOLESTEROL INCREASED
  6. ALL OTHER THERAPEUTIC PRODUCTS [Concomitant]
     Indication: NERVOUS SYSTEM DISORDER

REACTIONS (7)
  - ABDOMINAL DISTENSION [None]
  - ABNORMAL DREAMS [None]
  - CONSTIPATION [None]
  - DYSGEUSIA [None]
  - IRRITABILITY [None]
  - WEIGHT DECREASED [None]
  - WEIGHT INCREASED [None]
